FAERS Safety Report 22125183 (Version 3)
Quarter: 2023Q2

REPORT INFORMATION
  Report Type: Spontaneous
  Country: US (occurrence: US)
  Receive Date: 20230322
  Receipt Date: 20230616
  Transmission Date: 20230721
  Serious: No
  Sender: FDA-Public Use
  Company Number: US-SA-SAC20230321000416

PATIENT
  Sex: Female

DRUGS (1)
  1. DUPIXENT [Suspect]
     Active Substance: DUPILUMAB
     Indication: Eczema
     Dosage: 300 MG, QOW
     Route: 058

REACTIONS (5)
  - Musculoskeletal stiffness [Unknown]
  - Injection site pain [Recovering/Resolving]
  - Dry eye [Unknown]
  - Injection site pruritus [Recovering/Resolving]
  - Arthralgia [Unknown]
